FAERS Safety Report 8914596 (Version 1)
Quarter: 2012Q4

REPORT INFORMATION
  Report Type: 
  Country: GB (occurrence: GB)
  Receive Date: 20121119
  Receipt Date: 20121119
  Transmission Date: 20130627
  Serious: Yes (Other)
  Sender: FDA-Public Use
  Company Number: GB-ROXANE LABORATORIES, INC.-2012-RO-02396RO

PATIENT
  Age: 65 Year
  Sex: Female

DRUGS (1)
  1. EXEMESTANE [Suspect]
     Indication: BREAST CANCER

REACTIONS (6)
  - Restlessness [Unknown]
  - Pruritus [Not Recovered/Not Resolved]
  - Weight increased [Recovered/Resolved]
  - Feeling hot [Unknown]
  - Cough [Unknown]
  - Dizziness [Unknown]
